FAERS Safety Report 18586094 (Version 1)
Quarter: 2020Q4

REPORT INFORMATION
  Report Type: Spontaneous
  Country: LU (occurrence: LU)
  Receive Date: 20201207
  Receipt Date: 20201207
  Transmission Date: 20210114
  Serious: Yes (Other)
  Sender: FDA-Public Use
  Company Number: LU-PFIZER INC-2020476086

PATIENT
  Age: 18 Year
  Sex: Male
  Weight: 77.5 kg

DRUGS (19)
  1. TARADYL [Concomitant]
     Active Substance: KETOROLAC TROMETHAMINE
     Dosage: 20 MG, 3X/DAY (FREQ:8 H)
     Route: 042
     Dates: start: 20201013, end: 20201015
  2. LYRICA [Suspect]
     Active Substance: PREGABALIN
     Dosage: 75 MG, 2X/DAY
     Route: 048
     Dates: start: 20201008
  3. PROZAC [Suspect]
     Active Substance: FLUOXETINE HYDROCHLORIDE
     Dosage: 40 MG
  4. PROZAC [Suspect]
     Active Substance: FLUOXETINE HYDROCHLORIDE
     Dosage: 60 MG
  5. TEMESTA EXPIDET [Concomitant]
     Active Substance: LORAZEPAM
     Dosage: 1 MG, DAILY
     Dates: start: 20201016, end: 20201016
  6. IBUPROFEN. [Suspect]
     Active Substance: IBUPROFEN
     Dosage: 400 MG, 3X/DAY
     Route: 048
     Dates: start: 20201016
  7. VALIUM [Suspect]
     Active Substance: DIAZEPAM
     Indication: ANXIETY
     Dosage: 10 MG, DAILY
     Route: 048
     Dates: start: 20200924, end: 20201012
  8. ABILIFY [Suspect]
     Active Substance: ARIPIPRAZOLE
     Indication: AGITATION
     Dosage: 15 MG, DAILY
     Route: 048
     Dates: start: 20200924, end: 20201023
  9. NEXIAM [ESOMEPRAZOLE SODIUM] [Suspect]
     Active Substance: ESOMEPRAZOLE SODIUM
     Dosage: 20 MG, DAILY
     Route: 048
     Dates: start: 20201015
  10. TRAMADOL HYDROCHLORIDE. [Suspect]
     Active Substance: TRAMADOL HYDROCHLORIDE
     Dosage: 100 MG, 3X/DAY
     Route: 042
     Dates: start: 20201013, end: 20201014
  11. TRAZODONE HYDROCHLORIDE. [Suspect]
     Active Substance: TRAZODONE HYDROCHLORIDE
     Dosage: 100 MG, DAILY
     Route: 048
     Dates: start: 20201021
  12. ATARAX [Suspect]
     Active Substance: HYDROXYZINE HYDROCHLORIDE
     Dosage: 25 MG, 3X/DAY
     Route: 048
     Dates: start: 20200923, end: 20201024
  13. CLOPIXOL ACUTARD [Suspect]
     Active Substance: ZUCLOPENTHIXOL ACETATE
     Dosage: 30 DROP, DAILY (POSOLOGY: 5,5,5,5,10 DROPS PER DAY)
     Route: 048
     Dates: start: 20200928, end: 20201022
  14. PROZAC [Suspect]
     Active Substance: FLUOXETINE HYDROCHLORIDE
     Indication: DEPRESSION
     Dosage: 20 MG, DAILY
     Route: 048
     Dates: start: 20200921
  15. REMERGON [Suspect]
     Active Substance: MIRTAZAPINE
     Dosage: 15 MG, DAILY
     Route: 048
     Dates: start: 20201005, end: 20201021
  16. NOVALGIN (METAMIZOLE SODIUM) [Concomitant]
     Active Substance: METAMIZOLE SODIUM
     Indication: PAIN
     Dosage: 500 MG, 3X/DAY (FREQ:8 H)
     Route: 048
     Dates: start: 20201030, end: 20201030
  17. LITICAN [ALIZAPRIDE] [Concomitant]
     Dosage: 50 MG, 3X/DAY (FREQ:8 H)
     Route: 042
     Dates: start: 20201013, end: 20201015
  18. SEROQUEL XR [Suspect]
     Active Substance: QUETIAPINE FUMARATE
     Dosage: 300 MG, 2X/DAY
     Route: 048
     Dates: start: 20201022
  19. TRADONAL [Suspect]
     Active Substance: TRAMADOL HYDROCHLORIDE
     Dosage: 50 MG, 4X/DAY
     Route: 048
     Dates: start: 20201015

REACTIONS (2)
  - Neutropenia [Not Recovered/Not Resolved]
  - Leukopenia [Not Recovered/Not Resolved]

NARRATIVE: CASE EVENT DATE: 20201013
